FAERS Safety Report 8288252-1 (Version None)
Quarter: 2012Q2

REPORT INFORMATION
  Report Type: 
  Country: None (occurrence: None)
  Receive Date: 20120416
  Receipt Date: 20120404
  Transmission Date: 20120825
  Serious: Yes (Other)
  Sender: FDA-Public Use
  Company Number: AU-PFIZER INC-2012086342

PATIENT

DRUGS (1)
  1. SILDENAFIL CITRATE [Suspect]
     Dosage: 3MG/KG/DAY
     Route: 048

REACTIONS (1)
  - HYPOTENSION [None]
